FAERS Safety Report 9228925 (Version 4)
Quarter: 2014Q1

REPORT INFORMATION
  Report Type: Spontaneous
  Country: US (occurrence: US)
  Receive Date: 20130412
  Receipt Date: 20140327
  Transmission Date: 20141002
  Serious: Yes (Disabling)
  Sender: FDA-Public Use
  Company Number: US-009507513-1304USA005198

PATIENT
  Sex: Male
  Weight: 97.52 kg

DRUGS (1)
  1. PROSCAR [Suspect]
     Indication: ANDROGENETIC ALOPECIA
     Dosage: 5MG/1/4 TAB DAILY
     Route: 048
     Dates: start: 20111116, end: 20120820

REACTIONS (11)
  - Anxiety [Unknown]
  - Sexual dysfunction [Unknown]
  - Drug administration error [Unknown]
  - Penis disorder [Unknown]
  - Wrong technique in drug usage process [Unknown]
  - Anorgasmia [Unknown]
  - Organic erectile dysfunction [Unknown]
  - Suicidal ideation [Unknown]
  - Thirst [Unknown]
  - Knee operation [Unknown]
  - Depression [Unknown]
